FAERS Safety Report 18861004 (Version 1)
Quarter: 2021Q1

REPORT INFORMATION
  Report Type: Report from Study
  Country: GB (occurrence: GB)
  Receive Date: 20210208
  Receipt Date: 20210208
  Transmission Date: 20210420
  Serious: Yes (Hospitalization)
  Sender: FDA-Public Use
  Company Number: NVSC2020GB327101

PATIENT
  Sex: Male

DRUGS (1)
  1. OMNITROPE [Suspect]
     Active Substance: SOMATROPIN
     Indication: PRODUCT USED FOR UNKNOWN INDICATION
     Dosage: 0.35 MG, QD (AS DIRECTED)
     Route: 058
     Dates: start: 20180226

REACTIONS (3)
  - Product supply issue [Unknown]
  - Brain neoplasm [Unknown]
  - Product dose omission issue [Unknown]
